FAERS Safety Report 6571301-6 (Version None)
Quarter: 2010Q1

REPORT INFORMATION
  Report Type: 
  Country: None (occurrence: None)
  Receive Date: 20100129
  Receipt Date: 20100122
  Transmission Date: 20100710
  Serious: Yes (Hospitalization)
  Sender: FDA-Public Use
  Company Number: SP02764

PATIENT
  Age: 67 Year
  Sex: Male

DRUGS (1)
  1. VISICOL [Suspect]
     Indication: COLONOSCOPY
     Dosage: (50 GM),ORAL
     Route: 048
     Dates: start: 20100113, end: 20100113

REACTIONS (2)
  - ALTERED STATE OF CONSCIOUSNESS [None]
  - HYPONATRAEMIA [None]
